FAERS Safety Report 9978043 (Version 2)
Quarter: 2014Q1

REPORT INFORMATION
  Report Type: Report from Study
  Country: US (occurrence: US)
  Receive Date: 20140306
  Receipt Date: 20140306
  Transmission Date: 20141002
  Serious: No
  Sender: FDA-Public Use
  Company Number: US-ABBVIE-13P-163-1034156-00

PATIENT
  Sex: Female
  Weight: 52.21 kg

DRUGS (17)
  1. HUMIRA [Suspect]
     Indication: PSORIATIC ARTHROPATHY
     Route: 058
     Dates: start: 2011, end: 2012
  2. HUMIRA [Suspect]
  3. HUMIRA [Suspect]
     Dates: start: 201307
  4. HYDROCODONE [Concomitant]
     Indication: PAIN
  5. FOLIC ACID [Concomitant]
     Indication: VITAMIN SUPPLEMENTATION
  6. SYNTHROID [Concomitant]
     Indication: HYPOTHYROIDISM
  7. PROTONIX [Concomitant]
     Indication: GASTRITIS
  8. DONNATAL [Concomitant]
     Indication: COLITIS MICROSCOPIC
  9. SALAGEN [Concomitant]
     Indication: SJOGREN^S SYNDROME
  10. VALIUM [Concomitant]
     Indication: NERVOUSNESS
  11. VALIUM [Concomitant]
     Indication: ANXIETY
  12. CELEXA [Concomitant]
     Indication: NERVOUSNESS
  13. CELEXA [Concomitant]
     Indication: ANXIETY
  14. MEDROL [Concomitant]
     Indication: ADRENAL DISORDER
  15. REMERON [Concomitant]
     Indication: INSOMNIA
  16. COLACE [Concomitant]
     Indication: CONSTIPATION
  17. VENTOLIN [Concomitant]
     Indication: ASTHMA

REACTIONS (6)
  - Seasonal allergy [Not Recovered/Not Resolved]
  - Nasopharyngitis [Not Recovered/Not Resolved]
  - Respiratory tract infection [Recovered/Resolved]
  - Arthralgia [Recovered/Resolved]
  - Joint stiffness [Recovered/Resolved]
  - Joint swelling [Recovered/Resolved]
